FAERS Safety Report 15544790 (Version 1)
Quarter: 2018Q4

REPORT INFORMATION
  Report Type: Spontaneous
  Country: CN (occurrence: CN)
  Receive Date: 20181024
  Receipt Date: 20181024
  Transmission Date: 20190205
  Serious: Yes (Death, Hospitalization, Other)
  Sender: FDA-Public Use
  Company Number: CN-LUPIN PHARMACEUTICALS INC.-2018-07430

PATIENT
  Age: 50 Year
  Sex: Female

DRUGS (4)
  1. LINEZOLID. [Suspect]
     Active Substance: LINEZOLID
     Indication: ENDOCARDITIS
     Dosage: 600 MG, BID
     Route: 042
  2. LINEZOLID. [Suspect]
     Active Substance: LINEZOLID
     Dosage: 600 MG, BID
     Route: 042
  3. LINEZOLID. [Suspect]
     Active Substance: LINEZOLID
     Dosage: 600 MG, BID
     Route: 042
  4. WARFARIN [Concomitant]
     Active Substance: WARFARIN
     Indication: MITRAL VALVE REPLACEMENT
     Dosage: 1.25 MG, BID
     Route: 048

REACTIONS (6)
  - Shock [Fatal]
  - Thrombocytopenia [Fatal]
  - Atrial fibrillation [Not Recovered/Not Resolved]
  - Hypotension [Not Recovered/Not Resolved]
  - Multiple organ dysfunction syndrome [Fatal]
  - Lactic acidosis [Fatal]
